FAERS Safety Report 4581503-6 (Version None)
Quarter: 2005Q1

REPORT INFORMATION
  Report Type: 
  Country: None (occurrence: None)
  Receive Date: 20050127
  Receipt Date: 20040824
  Transmission Date: 20050727
  Serious: No
  Sender: FDA-Public Use
  Company Number: USA040876315

PATIENT
  Age: 11 Year
  Sex: Female

DRUGS (1)
  1. STRATTERA [Suspect]
     Indication: ATTENTION DEFICIT/HYPERACTIVITY DISORDER
     Dosage: 60 MG/1 AT BEDTIME
     Dates: start: 20040701

REACTIONS (4)
  - EYE ROLLING [None]
  - MUSCLE TWITCHING [None]
  - SLEEP WALKING [None]
  - SOMNOLENCE [None]
